FAERS Safety Report 6231028-7 (Version None)
Quarter: 2009Q2

REPORT INFORMATION
  Report Type: 
  Country: None (occurrence: None)
  Receive Date: 20090616
  Receipt Date: 20090604
  Transmission Date: 20091009
  Serious: Yes (Other)
  Sender: FDA-Public Use
  Company Number: US-PFIZER INC-2005130411

PATIENT
  Sex: Female
  Weight: 77 kg

DRUGS (15)
  1. PROVERA [Suspect]
     Indication: HORMONE REPLACEMENT THERAPY
     Dosage: 10 MG, UNK
     Route: 048
     Dates: start: 19940603, end: 19961201
  2. PREMARIN [Suspect]
     Indication: HORMONE REPLACEMENT THERAPY
     Dosage: UNK
  3. PREMPRO [Suspect]
     Indication: HORMONE REPLACEMENT THERAPY
     Dosage: 0.625-5MG
     Route: 065
     Dates: start: 19961201, end: 19980101
  4. DILTIAZEM [Concomitant]
     Indication: BLOOD CHOLESTEROL
     Dosage: UNK
     Dates: start: 19970101
  5. DILTIAZEM [Concomitant]
     Indication: ANGINA PECTORIS
  6. ACTOS [Concomitant]
     Indication: DIABETES MELLITUS
     Dosage: UNK
     Dates: start: 19970101
  7. MAXZIDE [Concomitant]
     Indication: FLUID RETENTION
     Dosage: UNK
     Dates: start: 19970101
  8. LASIX [Concomitant]
     Indication: FLUID RETENTION
     Dosage: UNK
     Dates: start: 19970101
  9. METOLAZONE [Concomitant]
     Indication: HYPERTENSION
     Dosage: UNK
     Dates: start: 19970101
  10. AMARGYL [Concomitant]
     Indication: HYPERTENSION
     Dosage: UNK
     Dates: start: 19970101
  11. TRAZODONE [Concomitant]
     Dosage: UNK
     Dates: start: 19970101
  12. NAPROXEN [Concomitant]
     Indication: PAIN
     Dosage: UNK
     Dates: start: 19970101
  13. NAPROXEN [Concomitant]
     Indication: INFLAMMATION
  14. ALBUTEROL [Concomitant]
     Indication: ASTHMA PROPHYLAXIS
     Dosage: UNK
     Dates: start: 19970101
  15. FAMOTIDINE [Concomitant]
     Indication: GASTROOESOPHAGEAL REFLUX DISEASE
     Dosage: UNK
     Dates: start: 19970101

REACTIONS (1)
  - BREAST CANCER [None]
